FAERS Safety Report 5087100-0 (Version None)
Quarter: 2006Q3

REPORT INFORMATION
  Report Type: 
  Country: None (occurrence: None)
  Receive Date: 20060821
  Receipt Date: 20060808
  Transmission Date: 20061208
  Serious: Yes (Death, Hospitalization, Other)
  Sender: FDA-Public Use
  Company Number: 2006-00368

PATIENT
  Age: 45 Year
  Sex: Female

DRUGS (2)
  1. VELCADE [Suspect]
     Indication: MULTIPLE MYELOMA
     Dosage: 1.30 MG, INTRAVENOUS
     Route: 042
     Dates: start: 20051128
  2. DOXORUBICIN HCL [Suspect]
     Indication: MULTIPLE MYELOMA
     Dosage: 30.00 MG/M2, INTRAVENOUS
     Route: 042
     Dates: start: 20051201

REACTIONS (4)
  - HAEMATEMESIS [None]
  - MALLORY-WEISS SYNDROME [None]
  - THROMBOCYTOPENIA [None]
  - VOMITING [None]
